FAERS Safety Report 12784344 (Version 1)
Quarter: 2016Q3

REPORT INFORMATION
  Report Type: Spontaneous
  Country: DE (occurrence: DE)
  Receive Date: 20160927
  Receipt Date: 20160927
  Transmission Date: 20161109
  Serious: Yes (Other)
  Sender: FDA-Public Use
  Company Number: DE-BEH-200814365

PATIENT
  Age: 64 Year
  Sex: Female

DRUGS (1)
  1. SANDOGLOBULIN [Suspect]
     Active Substance: HUMAN IMMUNOGLOBULIN G
     Indication: MYASTHENIA GRAVIS
     Dosage: DAILY DOSE QUANTITY: 10, DAILY DOSE UNIT: G
     Route: 042
     Dates: start: 2006

REACTIONS (3)
  - Hypertension [Not Recovered/Not Resolved]
  - Blood pressure increased [Recovered/Resolved]
  - Loss of consciousness [Recovered/Resolved]
